FAERS Safety Report 16276303 (Version 1)
Quarter: 2019Q2

REPORT INFORMATION
  Report Type: Report from Study
  Country: KR (occurrence: KR)
  Receive Date: 20190506
  Receipt Date: 20190506
  Transmission Date: 20190711
  Serious: Yes (Death, Other)
  Sender: FDA-Public Use
  Company Number: KR-ACTELION-A-CH2019-189910

PATIENT
  Sex: Female

DRUGS (1)
  1. OPSUMIT [Suspect]
     Active Substance: MACITENTAN
     Indication: PULMONARY ARTERIAL HYPERTENSION
     Dosage: 1 DF, QD
     Route: 048

REACTIONS (4)
  - Heart rate increased [Unknown]
  - Ascites [Unknown]
  - Death [Fatal]
  - Blood pressure decreased [Unknown]

NARRATIVE: CASE EVENT DATE: 201810
